FAERS Safety Report 5860546-6 (Version None)
Quarter: 2008Q3

REPORT INFORMATION
  Report Type: 
  Country: None (occurrence: None)
  Receive Date: 20080827
  Receipt Date: 20071003
  Transmission Date: 20090109
  Serious: No
  Sender: FDA-Public Use
  Company Number: US-ABBOTT-07P-163-0416273-00

PATIENT
  Sex: Female

DRUGS (11)
  1. COATED PDS [Suspect]
     Indication: BLOOD TRIGLYCERIDES INCREASED
     Route: 048
     Dates: start: 20070805, end: 20070907
  2. PREDNISONE TAB [Concomitant]
     Indication: POLYMYALGIA RHEUMATICA
     Route: 048
  3. ESTROGENS CONJUGATED [Concomitant]
     Indication: HORMONE REPLACEMENT THERAPY
  4. LORATADINE [Concomitant]
     Indication: SEASONAL ALLERGY
  5. EZETIMIBE [Concomitant]
     Indication: LOW DENSITY LIPOPROTEIN INCREASED
     Dates: start: 20070701
  6. CALCIUM [Concomitant]
     Indication: MINERAL SUPPLEMENTATION
  7. LINUM USITATISSIMUM SEED OIL [Concomitant]
     Indication: DRUG USE FOR UNKNOWN INDICATION
  8. M.V.I. [Concomitant]
     Indication: VITAMIN SUPPLEMENTATION
  9. MAGNESIUM SULFATE [Concomitant]
     Indication: MINERAL SUPPLEMENTATION
  10. ANTIOXIDANT [Concomitant]
     Indication: SUPPLEMENTATION THERAPY
  11. GARLIQUE [Concomitant]
     Indication: DRUG USE FOR UNKNOWN INDICATION

REACTIONS (8)
  - BLISTER [None]
  - DIARRHOEA [None]
  - FLUSHING [None]
  - HEADACHE [None]
  - RASH ERYTHEMATOUS [None]
  - RASH GENERALISED [None]
  - RASH PRURITIC [None]
  - SENSORY DISTURBANCE [None]
